FAERS Safety Report 5487295-0 (Version None)
Quarter: 2007Q4

REPORT INFORMATION
  Report Type: 
  Country: None (occurrence: None)
  Receive Date: 20071015
  Receipt Date: 20071004
  Transmission Date: 20080405
  Serious: Yes (Other)
  Sender: FDA-Public Use
  Company Number: CHPA2007US10411

PATIENT
  Age: 24 Month
  Sex: Male
  Weight: 14.5 kg

DRUGS (1)
  1. TRIAMINIC FLU COUGH AND FEVER BUBBLE GUM FLAVOR (NCH)(ACETAMINOPHEN (P [Suspect]
     Indication: PYREXIA
     Dosage: 0.5 TSP, ONCE/SINGLE, ORAL
     Route: 048
     Dates: start: 20071003, end: 20071003

REACTIONS (1)
  - CONVULSION [None]
